FAERS Safety Report 5102832-3 (Version None)
Quarter: 2006Q3

REPORT INFORMATION
  Report Type: 
  Country: None (occurrence: None)
  Receive Date: 20060907
  Receipt Date: 20060906
  Transmission Date: 20061208
  Serious: Yes (Other)
  Sender: FDA-Public Use
  Company Number: 226389

PATIENT
  Age: 63 Year
  Sex: Male

DRUGS (9)
  1. AVASTIN [Suspect]
     Indication: COLON CANCER
     Dosage: 387 MG, INTRAVENOUS
     Route: 042
     Dates: start: 20060524
  2. FLUOROURACIL [Concomitant]
  3. LEUCOVORIN CALCIUM [Concomitant]
  4. OXALIPLATIN [Concomitant]
  5. INSULIN [Concomitant]
  6. AVANDIA [Concomitant]
  7. GLUCOPHAGE [Concomitant]
  8. COZAAR [Concomitant]
  9. NEURONTIN [Concomitant]

REACTIONS (1)
  - SPEECH DISORDER [None]
